FAERS Safety Report 25960336 (Version 2)
Quarter: 2025Q4

REPORT INFORMATION
  Report Type: Spontaneous
  Country: US (occurrence: US)
  Receive Date: 20251026
  Receipt Date: 20251030
  Transmission Date: 20260117
  Serious: No
  Sender: SANDOZ
  Company Number: US-002147023-NVSC2025US163445

PATIENT
  Age: 81 Year
  Sex: Female
  Weight: 50.4 kg

DRUGS (10)
  1. AZITHROMYCIN [Suspect]
     Active Substance: AZITHROMYCIN
     Indication: Mycobacterium avium complex infection
     Dosage: 250 MG, BID
     Route: 048
     Dates: start: 20250814, end: 20251016
  2. AMIKACIN [Suspect]
     Active Substance: AMIKACIN
     Indication: Product used for unknown indication
     Dosage: UNK (NEBULIZED)
     Route: 065
  3. AZITHROMYCIN [Suspect]
     Active Substance: AZITHROMYCIN
     Indication: Mycobacterium avium complex infection
     Dosage: 250 MG, BID
     Route: 048
     Dates: start: 20250814, end: 20251016
  4. ETHAMBUTOL [Suspect]
     Active Substance: ETHAMBUTOL HYDROCHLORIDE
     Indication: Product used for unknown indication
     Dosage: UNK
     Route: 065
  5. CLOFAZIMINE [Suspect]
     Active Substance: CLOFAZIMINE
     Indication: Mycobacterium avium complex infection
     Dosage: 100 MG, QD
     Route: 048
     Dates: start: 20250828
  6. RIFAMPIN [Suspect]
     Active Substance: RIFAMPIN
     Indication: Mycobacterium avium complex infection
     Dosage: 300 MG, BID
     Route: 048
     Dates: start: 20250814, end: 20251016
  7. ALBUTEROL [Concomitant]
     Active Substance: ALBUTEROL
     Indication: Mycobacterium avium complex infection
     Dosage: 2 DOSAGE FORM (PUFFS)
     Route: 065
     Dates: start: 20230807
  8. BENZONATATE [Concomitant]
     Active Substance: BENZONATATE
     Indication: Mycobacterium avium complex infection
     Dosage: 200 MG
     Route: 065
     Dates: start: 20230921
  9. FLUTICASONE FUROATE [Concomitant]
     Active Substance: FLUTICASONE FUROATE
     Indication: Mycobacterium avium complex infection
     Dosage: 1 DOSAGE FORM (PUFF)
     Route: 065
     Dates: start: 20250916
  10. SODIUM CHLORIDE [Concomitant]
     Active Substance: SODIUM CHLORIDE
     Indication: Mycobacterium avium complex infection
     Dosage: 4 ML (STRENGTH: 3 PERCENT)
     Route: 065
     Dates: start: 20231106

REACTIONS (6)
  - Brain fog [Recovered/Resolved]
  - Balance disorder [Recovered/Resolved]
  - Drug intolerance [Unknown]
  - Nervous system disorder [Unknown]
  - Cough [Unknown]
  - Diarrhoea [Recovered/Resolved]

NARRATIVE: CASE EVENT DATE: 20250908
